FAERS Safety Report 14092087 (Version 1)
Quarter: 2017Q4

REPORT INFORMATION
  Report Type: Report from Study
  Country: None (occurrence: US)
  Receive Date: 20171016
  Receipt Date: 20171016
  Transmission Date: 20180321
  Serious: Yes (Hospitalization, Other)
  Sender: FDA-Public Use
  Company Number: US-ABBVIE-16K-163-1561112-00

PATIENT
  Sex: Female
  Weight: 64.92 kg

DRUGS (2)
  1. HUMIRA [Suspect]
     Active Substance: ADALIMUMAB
     Route: 058
     Dates: start: 201603
  2. HUMIRA [Suspect]
     Active Substance: ADALIMUMAB
     Indication: CROHN^S DISEASE
     Route: 058
     Dates: start: 201504, end: 201601

REACTIONS (16)
  - Gait disturbance [Recovered/Resolved]
  - Pain [Recovered/Resolved]
  - Cardiac disorder [Unknown]
  - Lung carcinoma cell type unspecified stage I [Recovered/Resolved]
  - Vitreous floaters [Not Recovered/Not Resolved]
  - Rotator cuff syndrome [Recovered/Resolved]
  - Skin atrophy [Recovering/Resolving]
  - Laceration [Recovered/Resolved]
  - Pharyngitis streptococcal [Recovered/Resolved]
  - Extrasystoles [Unknown]
  - Lymphoma [Recovered/Resolved]
  - Memory impairment [Recovering/Resolving]
  - Cystitis [Recovered/Resolved]
  - Exposure to radiation [Recovered/Resolved]
  - Tooth disorder [Recovered/Resolved]
  - Contusion [Not Recovered/Not Resolved]

NARRATIVE: CASE EVENT DATE: 2015
